FAERS Safety Report 17005189 (Version 1)
Quarter: 2019Q4

REPORT INFORMATION
  Report Type: Report from Study
  Country: CA (occurrence: CA)
  Receive Date: 20191107
  Receipt Date: 20191107
  Transmission Date: 20200122
  Serious: Yes (Other)
  Sender: FDA-Public Use
  Company Number: CA-JNJFOC-20191042770

PATIENT
  Age: 40 Year
  Sex: Male
  Weight: 82 kg

DRUGS (1)
  1. STELARA [Suspect]
     Active Substance: USTEKINUMAB
     Indication: PRODUCT USED FOR UNKNOWN INDICATION
     Dosage: STRENGTH = 90 MG
     Route: 058
     Dates: start: 20170811

REACTIONS (1)
  - Infected cyst [Recovered/Resolved]

NARRATIVE: CASE EVENT DATE: 20190930
